FAERS Safety Report 7743913-5 (Version None)
Quarter: 2011Q3

REPORT INFORMATION
  Report Type: 
  Country: None (occurrence: None)
  Receive Date: 20110912
  Receipt Date: 20110902
  Transmission Date: 20111222
  Serious: Yes (Other)
  Sender: FDA-Public Use
  Company Number: JP-GLAXOSMITHKLINE-B0701792A

PATIENT
  Sex: Female
  Weight: 38 kg

DRUGS (6)
  1. ZOVIRAX [Suspect]
     Indication: PRODUCT USED FOR UNKNOWN INDICATION
     Dosage: 5G PER DAY
     Route: 048
     Dates: start: 20110215, end: 20110219
  2. POLITOSE [Concomitant]
     Dosage: 3IUAX PER DAY
     Route: 048
  3. HALCION [Concomitant]
     Dosage: 1IUAX PER DAY
     Route: 048
  4. LAC B [Concomitant]
     Dosage: 3G PER DAY
     Route: 048
  5. VOLTAREN [Concomitant]
     Dosage: 1IUAX PER DAY
     Route: 054
  6. RISUMIC [Concomitant]
     Dosage: 1IUAX PER DAY
     Route: 048

REACTIONS (2)
  - RESTLESSNESS [None]
  - DELIRIUM [None]
